FAERS Safety Report 10770866 (Version 2)
Quarter: 2015Q1

REPORT INFORMATION
  Report Type: Spontaneous
  Country: US (occurrence: US)
  Receive Date: 20150206
  Receipt Date: 20150218
  Transmission Date: 20150721
  Serious: Yes (Other)
  Sender: FDA-Public Use
  Company Number: US-BAYER-2015-014046

PATIENT
  Age: 92 Year
  Sex: Female
  Weight: 59 kg

DRUGS (1)
  1. PAIN STOPPER EXTRA [Suspect]
     Active Substance: ACETAMINOPHEN\ASPIRIN\CAFFEINE\SALICYLAMIDE
     Dosage: 2 DF, QD
     Route: 048

REACTIONS (6)
  - Tremor [Recovered/Resolved]
  - Hypoaesthesia [Recovered/Resolved]
  - Incoherent [Recovered/Resolved]
  - Incorrect drug administration duration [None]
  - Loss of consciousness [Recovered/Resolved]
  - Dizziness [Recovered/Resolved]

NARRATIVE: CASE EVENT DATE: 20150128
